FAERS Safety Report 21200337 (Version 2)
Quarter: 2025Q3

REPORT INFORMATION
  Report Type: Report from Study
  Country: US (occurrence: US)
  Receive Date: 20220811
  Receipt Date: 20250918
  Transmission Date: 20251020
  Serious: No
  Sender: TAKEDA
  Company Number: US-TAKEDA-2022TUS055074

PATIENT
  Sex: Female
  Weight: 76.19 kg

DRUGS (53)
  1. BRIGATINIB [Suspect]
     Active Substance: BRIGATINIB
     Indication: Lung neoplasm malignant
     Dosage: 180 MILLIGRAM, QD
     Dates: start: 202207
  2. BRIGATINIB [Suspect]
     Active Substance: BRIGATINIB
     Dosage: 90 MILLIGRAM, QD
     Dates: start: 20250715
  3. FERROUS SULFATE [Concomitant]
     Active Substance: FERROUS SULFATE
  4. FISH OIL [Concomitant]
     Active Substance: FISH OIL
  5. ALAWAY [Concomitant]
     Active Substance: KETOTIFEN FUMARATE
  6. ALECENSA [Concomitant]
     Active Substance: ALECTINIB HYDROCHLORIDE
  7. ALIMTA [Concomitant]
     Active Substance: PEMETREXED DISODIUM
  8. ALLEGRA [Concomitant]
     Active Substance: FEXOFENADINE HYDROCHLORIDE
  9. AMOXICILLIN [Concomitant]
     Active Substance: AMOXICILLIN
  10. ANUSOL HC [Concomitant]
     Active Substance: HYDROCORTISONE
  11. AUGMENTIN [Concomitant]
     Active Substance: AMOXICILLIN\CLAVULANATE POTASSIUM
  12. BENADRYL [Concomitant]
     Active Substance: DIPHENHYDRAMINE HYDROCHLORIDE
  13. BENZONATATE [Concomitant]
     Active Substance: BENZONATATE
  14. CALCIUM\VITAMIN D [Concomitant]
     Active Substance: CALCIUM\VITAMIN D
  15. CHLORHEXIDINE GLUCONATE [Concomitant]
     Active Substance: CHLORHEXIDINE GLUCONATE
  16. CLARITIN [Concomitant]
     Active Substance: LORATADINE
  17. CLARITIN-D NOS [Concomitant]
     Active Substance: LORATADINE\PSEUDOEPHEDRINE SULFATE
  18. CLOTRIMAZOLE [Concomitant]
     Active Substance: CLOTRIMAZOLE
  19. COLACE [Concomitant]
     Active Substance: DOCUSATE SODIUM
  20. DEXAMETHASONE [Concomitant]
     Active Substance: DEXAMETHASONE
  21. EMEND (FOSAPREPITANT DIMEGLUMINE) [Concomitant]
     Active Substance: FOSAPREPITANT DIMEGLUMINE
  22. FERRIC POLYSACCHARIDE COMPLEX [Concomitant]
     Active Substance: FERRIC POLYSACCHARIDE COMPLEX
  23. GEMFIBROZIL [Concomitant]
     Active Substance: GEMFIBROZIL
  24. GUAIFENESIN [Concomitant]
     Active Substance: GUAIFENESIN
  25. IMODIUM A-D [Concomitant]
     Active Substance: LOPERAMIDE HYDROCHLORIDE
  26. LAC-HYDRIN [Concomitant]
     Active Substance: AMMONIUM LACTATE
  27. LEVOCETIRIZINE DIHYDROCHLORIDE [Concomitant]
     Active Substance: LEVOCETIRIZINE DIHYDROCHLORIDE
  28. LOMOTIL [Concomitant]
     Active Substance: ATROPINE SULFATE\DIPHENOXYLATE HYDROCHLORIDE
  29. LOPID [Concomitant]
     Active Substance: GEMFIBROZIL
  30. LORAZEPAM [Concomitant]
     Active Substance: LORAZEPAM
  31. LOVAZA [Concomitant]
     Active Substance: OMEGA-3-ACID ETHYL ESTERS
  32. MUCINEX DM [Concomitant]
     Active Substance: DEXTROMETHORPHAN HYDROBROMIDE\GUAIFENESIN
  33. OMEPRAZOLE [Concomitant]
     Active Substance: OMEPRAZOLE
  34. ONDANSETRON HYDROCHLORIDE [Concomitant]
     Active Substance: ONDANSETRON HYDROCHLORIDE
  35. PEPCID [Concomitant]
     Active Substance: FAMOTIDINE
  36. PEPTO-BISMOL [Concomitant]
     Active Substance: BISMUTH SUBSALICYLATE
  37. PREDNISONE [Concomitant]
     Active Substance: PREDNISONE
  38. PRILOSEC OTC [Concomitant]
     Active Substance: OMEPRAZOLE MAGNESIUM
  39. PROCHLORPERAZINE [Concomitant]
     Active Substance: PROCHLORPERAZINE
  40. PROMETHAZINE DM [Concomitant]
     Active Substance: DEXTROMETHORPHAN HYDROBROMIDE\PROMETHAZINE HYDROCHLORIDE
  41. REFRESH TEARS [Concomitant]
     Active Substance: CARBOXYMETHYLCELLULOSE SODIUM
  42. ROBITUSSIN COUGH AND CHEST CONGESTION DM [Concomitant]
     Active Substance: DEXTROMETHORPHAN HYDROBROMIDE\GUAIFENESIN
  43. Wart remover [Concomitant]
  44. SENNA LAXATIVE [Concomitant]
     Active Substance: SENNOSIDES
  45. SUDAFED [Concomitant]
     Active Substance: PSEUDOEPHEDRINE HYDROCHLORIDE
  46. TAMIFLU [Concomitant]
     Active Substance: OSELTAMIVIR PHOSPHATE
  47. TYLENOL EXTRA STRENGTH [Concomitant]
     Active Substance: ACETAMINOPHEN
  48. VENTOLIN HFA [Concomitant]
     Active Substance: ALBUTEROL SULFATE
  49. ZADITOR [Concomitant]
     Active Substance: KETOTIFEN FUMARATE
  50. Zantac 360 Original Strength [Concomitant]
  51. ZITHROMAX [Concomitant]
     Active Substance: AZITHROMYCIN DIHYDRATE
  52. ZOVIRAX [Concomitant]
     Active Substance: ACYCLOVIR
  53. ZYRTEC [Concomitant]
     Active Substance: CETIRIZINE HYDROCHLORIDE

REACTIONS (2)
  - Nasopharyngitis [Recovering/Resolving]
  - Diarrhoea [Unknown]
